FAERS Safety Report 23675033 (Version 3)
Quarter: 2024Q2

REPORT INFORMATION
  Report Type: Spontaneous
  Country: JP (occurrence: JP)
  Receive Date: 20240326
  Receipt Date: 20240615
  Transmission Date: 20240715
  Serious: Yes (Other)
  Sender: FDA-Public Use
  Company Number: JP-NEUROCRINE BIOSCIENCES INC.-2023NBI06458

PATIENT
  Age: 47 Year
  Sex: Male

DRUGS (6)
  1. VALBENAZINE [Suspect]
     Active Substance: VALBENAZINE
     Indication: Dyskinesia
     Dosage: 40 MILLIGRAM, QD
     Route: 048
     Dates: start: 20230715, end: 20230812
  2. BIPERIDEN HYDROCHLORIDE [Concomitant]
     Active Substance: BIPERIDEN HYDROCHLORIDE
     Indication: Extrapyramidal disorder
     Dosage: 1 MILLIGRAM
     Dates: start: 20230715
  3. MAGNESIUM OXIDE [Concomitant]
     Active Substance: MAGNESIUM OXIDE
     Indication: Constipation
     Dosage: UNK
     Dates: start: 20230715
  4. RISPERIDONE [Concomitant]
     Active Substance: RISPERIDONE
     Indication: Hallucination
     Dosage: UNK
     Dates: start: 20230715
  5. FAMOTIDINE [Concomitant]
     Active Substance: FAMOTIDINE
     Indication: Abdominal pain upper
     Dosage: UNK
     Dates: start: 20230715
  6. BIO-THREE [Concomitant]
     Active Substance: HERBALS
     Indication: Abdominal discomfort
     Dosage: UNK
     Dates: start: 20230715

REACTIONS (2)
  - Tardive dyskinesia [Recovering/Resolving]
  - Extrapyramidal disorder [Recovering/Resolving]

NARRATIVE: CASE EVENT DATE: 20230718
